FAERS Safety Report 8447908-8 (Version None)
Quarter: 2012Q2

REPORT INFORMATION
  Report Type: 
  Country: None (occurrence: None)
  Receive Date: 20120619
  Receipt Date: 20120605
  Transmission Date: 20120825
  Serious: Yes (Disabling)
  Sender: FDA-Public Use
  Company Number: US-BAYER-2012-057948

PATIENT

DRUGS (8)
  1. ANAGRELIDE HCL [Suspect]
     Indication: ESSENTIAL THROMBOCYTHAEMIA
     Dosage: 0.5 MG, QD
     Dates: start: 20091201, end: 20100126
  2. ALLOPURINOL [Concomitant]
     Indication: HYPERURICAEMIA
     Dosage: 300 MG, QD
     Dates: start: 20080101
  3. HYDROXYUREA [Suspect]
     Dosage: 750 MG, QD
     Dates: start: 19940422, end: 20080612
  4. HYDROXYUREA [Suspect]
     Indication: ESSENTIAL THROMBOCYTHAEMIA
     Dosage: 714 MG, QD
     Dates: start: 20080612, end: 20100126
  5. HYDROXYUREA [Suspect]
     Dosage: 857 MG, QD
     Dates: start: 20100126
  6. CLOPIDOGREL [Suspect]
     Indication: ESSENTIAL THROMBOCYTHAEMIA
     Dosage: 75 MG, QD
     Dates: start: 20100123, end: 20100615
  7. ASPIRIN [Suspect]
     Dosage: 75 MG, QD
     Dates: start: 20070406, end: 20100323
  8. ASPIRIN [Suspect]
     Dosage: 75 MG, QD
     Dates: start: 20100510

REACTIONS (8)
  - SKIN REACTION [None]
  - MYELOFIBROSIS [None]
  - THROMBOCYTOSIS [None]
  - PHARYNGEAL DISORDER [None]
  - BLOOD DISORDER [None]
  - MOUTH ULCERATION [None]
  - OROPHARYNGEAL BLISTERING [None]
  - NEOPLASM MALIGNANT [None]
